FAERS Safety Report 18844820 (Version 1)
Quarter: 2021Q1

REPORT INFORMATION
  Report Type: Spontaneous
  Country: US (occurrence: US)
  Receive Date: 20210204
  Receipt Date: 20210204
  Transmission Date: 20210419
  Serious: Yes (Other)
  Sender: FDA-Public Use
  Company Number: US-GLAXOSMITHKLINE-US2021AMR022670

PATIENT
  Sex: Female

DRUGS (1)
  1. BENLYSTA [Suspect]
     Active Substance: BELIMUMAB
     Indication: SYSTEMIC LUPUS ERYTHEMATOSUS
     Dosage: UNK
     Route: 058

REACTIONS (9)
  - Sleep disorder [Unknown]
  - Renal disorder [Unknown]
  - Dyslexia [Unknown]
  - Alopecia [Unknown]
  - Vision blurred [Unknown]
  - Systemic lupus erythematosus [Unknown]
  - Memory impairment [Unknown]
  - Splenic cyst [Unknown]
  - Urticaria [Unknown]
